FAERS Safety Report 11783450 (Version 2)
Quarter: 2015Q4

REPORT INFORMATION
  Report Type: Spontaneous
  Country: JP (occurrence: JP)
  Receive Date: 20151127
  Receipt Date: 20151208
  Transmission Date: 20160305
  Serious: Yes (Other)
  Sender: FDA-Public Use
  Company Number: JP-NOVOPROD-471001

PATIENT
  Age: 6 Year
  Sex: Male
  Weight: 17 kg

DRUGS (8)
  1. CARBOCISTEINE [Concomitant]
     Active Substance: CARBOCYSTEINE
     Dosage: 450 MG, QD
     Route: 048
     Dates: start: 20150402, end: 20150409
  2. ONON [Concomitant]
     Active Substance: PRANLUKAST
     Dosage: 100 MG, QD
     Route: 048
     Dates: start: 20140903, end: 20141102
  3. ONON [Concomitant]
     Active Substance: PRANLUKAST
     Dosage: 100 MG, QD
     Route: 048
     Dates: start: 20150106, end: 20150307
  4. PULSMARIN A [Concomitant]
     Active Substance: AMBROXOL HYDROCHLORIDE
     Dosage: 12 MG, QD
     Route: 048
     Dates: start: 20150402, end: 20150409
  5. NORDITROPIN [Suspect]
     Active Substance: SOMATROPIN
     Indication: GROWTH HORMONE DEFICIENCY
     Dosage: 0.5 MG, QD
     Route: 058
     Dates: start: 20140909, end: 20151117
  6. HOKUNALIN                          /00654901/ [Concomitant]
     Dosage: 0.5 MG, QD
     Route: 062
     Dates: start: 20150402, end: 20150409
  7. MEPTIN [Concomitant]
     Active Substance: PROCATEROL HYDROCHLORIDE
     Dosage: 0.3 ML, QD
     Route: 055
     Dates: start: 20150402, end: 20150409
  8. INTAL [Concomitant]
     Active Substance: CROMOLYN SODIUM
     Dosage: 2 ML, QD
     Route: 055
     Dates: start: 20150402, end: 20150409

REACTIONS (2)
  - Erythema [Unknown]
  - Langerhans^ cell histiocytosis [Unknown]

NARRATIVE: CASE EVENT DATE: 20150926
